FAERS Safety Report 10373114 (Version 3)
Quarter: 2014Q3

REPORT INFORMATION
  Report Type: Spontaneous
  Country: GR (occurrence: GR)
  Receive Date: 20140808
  Receipt Date: 20140919
  Transmission Date: 20150326
  Serious: Yes (Other)
  Sender: FDA-Public Use
  Company Number: GR-ABBVIE-14P-066-1269662-00

PATIENT
  Age: 45 Year
  Sex: Female

DRUGS (3)
  1. SINTROM [Concomitant]
     Active Substance: ACENOCOUMAROL
     Indication: ATRIAL FIBRILLATION
  2. LOPRESSOR [Concomitant]
     Active Substance: METOPROLOL TARTRATE
     Indication: PRODUCT USED FOR UNKNOWN INDICATION
  3. KLARICID [Suspect]
     Active Substance: CLARITHROMYCIN
     Indication: LACERATION
     Dates: start: 20140730, end: 20140730

REACTIONS (3)
  - Tachycardia [Not Recovered/Not Resolved]
  - Palpitations [Recovered/Resolved]
  - Palpitations [Not Recovered/Not Resolved]

NARRATIVE: CASE EVENT DATE: 2014
